FAERS Safety Report 5442069-1 (Version None)
Quarter: 2007Q3

REPORT INFORMATION
  Report Type: 
  Country: None (occurrence: None)
  Receive Date: 20070829
  Receipt Date: 20070814
  Transmission Date: 20080115
  Serious: Yes (Other)
  Sender: FDA-Public Use
  Company Number: 2007RR-09194

PATIENT
  Age: 23 Year
  Sex: Female

DRUGS (2)
  1. MINOCYCLINE HYDROCHLORIDE [Suspect]
     Indication: ACNE
     Dosage: ORAL
     Route: 048
  2. LEVOTHYROXIN (LEVOTHYROXIN) [Concomitant]

REACTIONS (3)
  - DYSPHAGIA [None]
  - GOITRE [None]
  - PIGMENTATION DISORDER [None]
